FAERS Safety Report 9356614 (Version 2)
Quarter: 2013Q3

REPORT INFORMATION
  Report Type: Spontaneous
  Country: GB (occurrence: None)
  Receive Date: 20130617
  Receipt Date: 20130726
  Transmission Date: 20140515
  Serious: Yes (Other)
  Sender: FDA-Public Use
  Company Number: AUR-APL-2013-04857

PATIENT
  Sex: Female

DRUGS (2)
  1. BISOPROLOL [Suspect]
     Indication: HYPERTENSION
  2. RAMIPRIL (RAMIPRIL) [Concomitant]

REACTIONS (1)
  - Ileostomy [None]
